FAERS Safety Report 19607074 (Version 3)
Quarter: 2023Q4

REPORT INFORMATION
  Report Type: Spontaneous
  Country: US (occurrence: US)
  Receive Date: 20210726
  Receipt Date: 20231018
  Transmission Date: 20240110
  Serious: Yes (Other)
  Sender: FDA-Public Use
  Company Number: US-GILEAD-2021-0541714

PATIENT
  Age: 47 Year
  Sex: Male
  Weight: 99.773 kg

DRUGS (65)
  1. STRIBILD [Suspect]
     Active Substance: COBICISTAT\ELVITEGRAVIR\EMTRICITABINE\TENOFOVIR DISOPROXIL FUMARATE
     Indication: HIV infection
     Dosage: UNK
     Route: 048
     Dates: start: 2007
  2. STRIBILD [Suspect]
     Active Substance: COBICISTAT\ELVITEGRAVIR\EMTRICITABINE\TENOFOVIR DISOPROXIL FUMARATE
     Dosage: UNK
     Route: 048
     Dates: start: 20160318, end: 20160827
  3. ATRIPLA [Suspect]
     Active Substance: EFAVIRENZ\EMTRICITABINE\TENOFOVIR DISOPROXIL FUMARATE
     Indication: HIV infection
     Dosage: UNK
     Route: 048
     Dates: start: 2007
  4. ATRIPLA [Suspect]
     Active Substance: EFAVIRENZ\EMTRICITABINE\TENOFOVIR DISOPROXIL FUMARATE
     Dosage: UNK
     Route: 048
     Dates: start: 20090317, end: 20111014
  5. ATRIPLA [Suspect]
     Active Substance: EFAVIRENZ\EMTRICITABINE\TENOFOVIR DISOPROXIL FUMARATE
     Dosage: UNK
     Route: 048
     Dates: start: 20120430, end: 20121101
  6. GENVOYA [Concomitant]
     Active Substance: COBICISTAT\ELVITEGRAVIR\EMTRICITABINE\TENOFOVIR ALAFENAMIDE FUMARATE
  7. ALBUTEROL [Concomitant]
     Active Substance: ALBUTEROL
  8. ALPRAZOLAM [Concomitant]
     Active Substance: ALPRAZOLAM
  9. AMITRIPTYLINE [Concomitant]
     Active Substance: AMITRIPTYLINE
  10. AMLODIPINE [Concomitant]
     Active Substance: AMLODIPINE BESYLATE
  11. AMOXICILLIN [Concomitant]
     Active Substance: AMOXICILLIN
  12. DEXTROAMPHET SACCHARAT, AMPHET ASPARTATE, DEXTROAMPHET SULFATE AND AMP [Concomitant]
     Active Substance: AMPHETAMINE ASPARTATE\AMPHETAMINE ASPARTATE MONOHYDRATE\AMPHETAMINE SULFATE\DEXTROAMPHETAMINE SACCHA
  13. ANDROGEL [Concomitant]
     Active Substance: TESTOSTERONE
  14. ATORVASTATIN [Concomitant]
     Active Substance: ATORVASTATIN
  15. AZITHROMYCIN [Concomitant]
     Active Substance: AZITHROMYCIN
  16. BENICAR [Concomitant]
     Active Substance: OLMESARTAN MEDOXOMIL
  17. BREO ELLIPTA [Concomitant]
     Active Substance: FLUTICASONE FUROATE\VILANTEROL TRIFENATATE
  18. CITALOPRAM [Concomitant]
     Active Substance: CITALOPRAM HYDROBROMIDE
  19. CLARITHROMYCIN [Concomitant]
     Active Substance: CLARITHROMYCIN
  20. CLINDAMYCIN [Concomitant]
     Active Substance: CLINDAMYCIN
  21. CLONAZEPAM [Concomitant]
     Active Substance: CLONAZEPAM
  22. CLONIDINE [Concomitant]
     Active Substance: CLONIDINE
  23. CYCLOBENZAPRINE [Concomitant]
     Active Substance: CYCLOBENZAPRINE
  24. DEXTROAMPHETAMINE [Concomitant]
     Active Substance: DEXTROAMPHETAMINE
  25. DIAZEPAM [Concomitant]
     Active Substance: DIAZEPAM
  26. DOVATO [Concomitant]
     Active Substance: DOLUTEGRAVIR SODIUM\LAMIVUDINE
  27. EFFEXOR [Concomitant]
     Active Substance: VENLAFAXINE HYDROCHLORIDE
  28. ESCITALOPRAM [Concomitant]
     Active Substance: ESCITALOPRAM OXALATE
  29. FAMOTIDINE [Concomitant]
     Active Substance: FAMOTIDINE
  30. FENOFIBRATE [Concomitant]
     Active Substance: FENOFIBRATE
  31. FLUCELVAX NOS [Concomitant]
     Active Substance: INFLUENZA A VIRUS A/BRISBANE/10/2010 (H1N1) ANTIGEN (MDCK CELL DERIVED, PROPIOLACTONE INACTIVATED)\I
  32. FLUCONAZOLE [Concomitant]
     Active Substance: FLUCONAZOLE
  33. FORTESTA [Concomitant]
     Active Substance: TESTOSTERONE
  34. GABAPENTIN [Concomitant]
     Active Substance: GABAPENTIN
  35. HYDROCHLOROTHIAZIDE [Concomitant]
     Active Substance: HYDROCHLOROTHIAZIDE
  36. HYDROCODONE [Concomitant]
     Active Substance: HYDROCODONE
  37. HYDROMET [Concomitant]
     Active Substance: HOMATROPINE METHYLBROMIDE\HYDROCODONE BITARTRATE
  38. HYDROXYZINE [Concomitant]
     Active Substance: HYDROXYZINE HYDROCHLORIDE
  39. IBUPROFEN [Concomitant]
     Active Substance: IBUPROFEN
  40. IRBESARTAN [Concomitant]
     Active Substance: IRBESARTAN
  41. KETOCONAZOLE [Concomitant]
     Active Substance: KETOCONAZOLE
  42. LEVOFLOXACIN [Concomitant]
     Active Substance: LEVOFLOXACIN
  43. LISINOPRIL [Concomitant]
     Active Substance: LISINOPRIL
  44. LORAZEPAM [Concomitant]
     Active Substance: LORAZEPAM
  45. LOVAZA [Concomitant]
     Active Substance: OMEGA-3-ACID ETHYL ESTERS
  46. LYRICA [Concomitant]
     Active Substance: PREGABALIN
  47. MELOXICAM [Concomitant]
     Active Substance: MELOXICAM
  48. MUPIROCIN [Concomitant]
     Active Substance: MUPIROCIN
  49. OXYCODONE [Concomitant]
     Active Substance: OXYCODONE
  50. PNEUMOVAX 23 [Concomitant]
     Active Substance: PNEUMOCOCCAL VACCINE, POLYVALENT 23
  51. PREDNISONE [Concomitant]
     Active Substance: PREDNISONE
  52. PROAIR BRONQUIAL [Concomitant]
  53. PROPOXYPHENE [Concomitant]
     Active Substance: PROPOXYPHENE
  54. QUETIAPINE [Concomitant]
     Active Substance: QUETIAPINE
  55. RISPERIDONE [Concomitant]
     Active Substance: RISPERIDONE
  56. SULFAMETHOXAZOLE\TRIMETHOPRIM [Concomitant]
     Active Substance: SULFAMETHOXAZOLE\TRIMETHOPRIM
  57. TEKTURNA [Concomitant]
     Active Substance: ALISKIREN HEMIFUMARATE
  58. TELMISARTAN [Concomitant]
     Active Substance: TELMISARTAN
  59. TESTIM [Concomitant]
     Active Substance: TESTOSTERONE
  60. TESTOSTERONE [Concomitant]
     Active Substance: TESTOSTERONE
  61. TRAMADOL [Concomitant]
     Active Substance: TRAMADOL\TRAMADOL HYDROCHLORIDE
  62. TRAZODONE [Concomitant]
     Active Substance: TRAZODONE HYDROCHLORIDE
  63. VALACYCLOVIR [Concomitant]
     Active Substance: VALACYCLOVIR HYDROCHLORIDE
  64. VENTOLIN [Concomitant]
     Active Substance: ALBUTEROL SULFATE
  65. VITAMIN D2 [Concomitant]
     Active Substance: ERGOCALCIFEROL

REACTIONS (9)
  - Osteoporosis [Unknown]
  - Chronic kidney disease [Not Recovered/Not Resolved]
  - Renal impairment [Unknown]
  - Emotional distress [Not Recovered/Not Resolved]
  - Anhedonia [Not Recovered/Not Resolved]
  - Bone density decreased [Unknown]
  - Anxiety [Not Recovered/Not Resolved]
  - Pain [Not Recovered/Not Resolved]
  - Osteopenia [Not Recovered/Not Resolved]

NARRATIVE: CASE EVENT DATE: 20170830
